FAERS Safety Report 21545512 (Version 1)
Quarter: 2022Q4

REPORT INFORMATION
  Report Type: Report from Study
  Country: US (occurrence: US)
  Receive Date: 20221103
  Receipt Date: 20221103
  Transmission Date: 20230113
  Serious: Yes (Death)
  Sender: FDA-Public Use
  Company Number: US-ABBVIE-4185486

PATIENT
  Sex: Male

DRUGS (1)
  1. VENCLEXTA [Suspect]
     Active Substance: VENETOCLAX
     Indication: Acute myeloid leukaemia (in remission)
     Dosage: FORM STRENGTH:100 MG/BY MOUTH ONCE DAILY WITH FOOD AND A FULL GLASS OF WATER FOR 21 DAYS ON THEN ...
     Route: 048

REACTIONS (1)
  - Acute myeloid leukaemia [Fatal]
